FAERS Safety Report 21788309 (Version 1)
Quarter: 2022Q4

REPORT INFORMATION
  Report Type: Spontaneous
  Country: US (occurrence: US)
  Receive Date: 20221228
  Receipt Date: 20221228
  Transmission Date: 20230112
  Serious: Yes (Hospitalization)
  Sender: FDA-Public Use
  Company Number: US-MYLANLABS-2022M1144440

PATIENT
  Age: 3 Month
  Sex: Female

DRUGS (8)
  1. METHOTREXATE [Suspect]
     Active Substance: METHOTREXATE
     Indication: Infantile fibromatosis
     Dosage: 1 MILLIGRAM/KILOGRAM, QW
     Route: 065
  2. IMATINIB [Interacting]
     Active Substance: IMATINIB
     Indication: Infantile fibromatosis
     Dosage: 11.3 MILLIGRAM/KILOGRAM, BID
     Route: 065
  3. IMATINIB [Interacting]
     Active Substance: IMATINIB
     Indication: Evidence based treatment
  4. FAMOTIDINE [Interacting]
     Active Substance: FAMOTIDINE
     Indication: Drug therapy
     Dosage: UNK
     Route: 065
  5. PANTOPRAZOLE [Interacting]
     Active Substance: PANTOPRAZOLE
     Indication: Drug therapy
     Dosage: UNK
     Route: 042
  6. OCTREOTIDE [Interacting]
     Active Substance: OCTREOTIDE
     Indication: Drug therapy
     Dosage: UNK
     Route: 042
  7. ESOMEPRAZOLE [Interacting]
     Active Substance: ESOMEPRAZOLE
     Indication: Drug therapy
     Dosage: UNK
     Route: 042
  8. VINBLASTINE [Suspect]
     Active Substance: VINBLASTINE
     Indication: Infantile fibromatosis
     Dosage: 0.17 MILLIGRAM/KILOGRAM, QW
     Route: 065

REACTIONS (3)
  - Drug ineffective [Unknown]
  - Drug interaction [Unknown]
  - Off label use [Unknown]
